FAERS Safety Report 6278267-7 (Version None)
Quarter: 2009Q3

REPORT INFORMATION
  Report Type: 
  Country: None (occurrence: None)
  Receive Date: 20090720
  Receipt Date: 20090720
  Transmission Date: 20100115
  Serious: Yes (Hospitalization)
  Sender: FDA-Public Use
  Company Number: None

PATIENT
  Sex: Male

DRUGS (2)
  1. CETUXIMAB [Suspect]
     Indication: HEAD AND NECK CANCER
     Dosage: 400 MG/M2, LOADING, IV; 250 MG/M2, IV
     Route: 042
     Dates: start: 20090109, end: 20090708
  2. CETUXIMAB [Suspect]
     Indication: HEAD AND NECK CANCER
     Dosage: 400 MG/M2, LOADING, IV; 250 MG/M2, IV
     Route: 042
     Dates: start: 20090107

REACTIONS (2)
  - DEHYDRATION [None]
  - PAIN [None]
